FAERS Safety Report 18473195 (Version 4)
Quarter: 2020Q4

REPORT INFORMATION
  Report Type: Report from Study
  Country: CO (occurrence: CO)
  Receive Date: 20201106
  Receipt Date: 20201209
  Transmission Date: 20210114
  Serious: Yes (Hospitalization, Other)
  Sender: FDA-Public Use
  Company Number: CO-TAKEDA-2019TUS066157

PATIENT
  Age: 23 Year
  Sex: Male
  Weight: 32 kg

DRUGS (1)
  1. VEDOLIZUMAB [Suspect]
     Active Substance: VEDOLIZUMAB
     Indication: CROHN^S DISEASE
     Dosage: 300 MILLIGRAM
     Route: 042
     Dates: start: 20190610

REACTIONS (14)
  - Arrhythmia [Not Recovered/Not Resolved]
  - Chills [Unknown]
  - Weight increased [Unknown]
  - Fistula [Not Recovered/Not Resolved]
  - Vomiting [Not Recovered/Not Resolved]
  - Hypotension [Not Recovered/Not Resolved]
  - Abdominal pain upper [Not Recovered/Not Resolved]
  - Musculoskeletal pain [Unknown]
  - Asthenia [Not Recovered/Not Resolved]
  - Proctalgia [Not Recovered/Not Resolved]
  - Back pain [Not Recovered/Not Resolved]
  - Product dose omission issue [Unknown]
  - Weight decreased [Unknown]
  - Pyrexia [Not Recovered/Not Resolved]

NARRATIVE: CASE EVENT DATE: 20200323
